FAERS Safety Report 5126438-5 (Version None)
Quarter: 2006Q4

REPORT INFORMATION
  Report Type: 
  Country: None (occurrence: None)
  Receive Date: 20061010
  Receipt Date: 20060925
  Transmission Date: 20070319
  Serious: Yes (Other)
  Sender: FDA-Public Use
  Company Number: 2005BI002772

PATIENT
  Age: 61 Year
  Sex: Male

DRUGS (4)
  1. AVONEX [Suspect]
     Indication: MULTIPLE SCLEROSIS
     Dosage: 30 UG; QW; IM
     Route: 030
     Dates: start: 20010413, end: 20010413
  2. 4 AMINOPYRIDINE [Concomitant]
  3. BACLOFEN [Concomitant]
  4. PROZAC [Concomitant]

REACTIONS (11)
  - ALANINE AMINOTRANSFERASE INCREASED [None]
  - ASPARTATE AMINOTRANSFERASE INCREASED [None]
  - BLOOD PRESSURE DECREASED [None]
  - BODY TEMPERATURE INCREASED [None]
  - DRUG HYPERSENSITIVITY [None]
  - DYSPNOEA [None]
  - NAUSEA [None]
  - OXYGEN SATURATION DECREASED [None]
  - STEVENS-JOHNSON SYNDROME [None]
  - SWELLING FACE [None]
  - THROAT TIGHTNESS [None]
